FAERS Safety Report 6179343-X (Version None)
Quarter: 2009Q2

REPORT INFORMATION
  Report Type: 
  Country: None (occurrence: None)
  Receive Date: 20090505
  Receipt Date: 20090505
  Transmission Date: 20091009
  Serious: Yes (Disabling)
  Sender: FDA-Public Use
  Company Number: BR-ABBOTT-09P-020-0570831-00

PATIENT
  Sex: Male
  Weight: 18.3 kg

DRUGS (2)
  1. DEPAKENE [Suspect]
     Indication: CONVULSION
     Route: 048
  2. UNKNOWN HOMEOPATHIC FORMULA [Concomitant]
     Indication: ADENOIDAL DISORDER

REACTIONS (1)
  - EXPRESSIVE LANGUAGE DISORDER [None]
